FAERS Safety Report 5781482-X (Version None)
Quarter: 2008Q2

REPORT INFORMATION
  Report Type: 
  Country: None (occurrence: None)
  Receive Date: 20080623
  Receipt Date: 20080604
  Transmission Date: 20081010
  Serious: No
  Sender: FDA-Public Use
  Company Number: US-BAYER-200824919NA

PATIENT
  Sex: Male

DRUGS (1)
  1. ULTRAVIST (PHARMACY BULK) [Suspect]
     Indication: COMPUTERISED TOMOGRAM
     Dosage: AS USED: 100 ML

REACTIONS (4)
  - NASAL CONGESTION [None]
  - NASAL OEDEMA [None]
  - SWELLING FACE [None]
  - URTICARIA [None]
